FAERS Safety Report 5103510-7 (Version None)
Quarter: 2006Q3

REPORT INFORMATION
  Report Type: 
  Country: None (occurrence: None)
  Receive Date: 20060913
  Receipt Date: 20060707
  Transmission Date: 20061208
  Serious: Yes (Other)
  Sender: FDA-Public Use
  Company Number: US-JNJFOC-20060902280

PATIENT

DRUGS (2)
  1. REMINYL [Suspect]
     Indication: DRUG USE FOR UNKNOWN INDICATION
  2. AMARYL [Suspect]
     Indication: DRUG USE FOR UNKNOWN INDICATION

REACTIONS (5)
  - DRUG DISPENSING ERROR [None]
  - HYPOGLYCAEMIA [None]
  - MEDICATION ERROR [None]
  - ROAD TRAFFIC ACCIDENT [None]
  - WRONG DRUG ADMINISTERED [None]
